FAERS Safety Report 6088400-8 (Version None)
Quarter: 2009Q1

REPORT INFORMATION
  Report Type: 
  Country: None (occurrence: None)
  Receive Date: 20090218
  Receipt Date: 20090218
  Transmission Date: 20090719
  Serious: Yes (Other)
  Sender: FDA-Public Use
  Company Number: None

PATIENT
  Age: 13 Year
  Sex: Male
  Weight: 68 kg

DRUGS (1)
  1. SIROLIMUS 1MG/ML [Suspect]
     Indication: NEUROFIBROMATOSIS
     Dosage: 1.4 PO MG BID
     Route: 048
     Dates: start: 20081125, end: 20081217

REACTIONS (5)
  - HEADACHE [None]
  - LOBAR PNEUMONIA [None]
  - PAIN IN EXTREMITY [None]
  - PNEUMONITIS [None]
  - VIRAL INFECTION [None]
